FAERS Safety Report 6939428-4 (Version None)
Quarter: 2010Q3

REPORT INFORMATION
  Report Type: 
  Country: None (occurrence: None)
  Receive Date: 20100819
  Receipt Date: 20100809
  Transmission Date: 20110219
  Serious: Yes (Life-Threatening)
  Sender: FDA-Public Use
  Company Number: FK0201000313

PATIENT
  Age: 45 Year
  Sex: Male

DRUGS (9)
  1. INTAXEL (PACLITAXEL) (PACLITAXEL) [Suspect]
     Indication: TONGUE NEOPLASM MALIGNANT STAGE UNSPECIFIED
     Dates: start: 20100807
  2. CYTAX (PACLITAXEL) (PACLITAXEL) [Concomitant]
  3. CARBOPLATIN [Concomitant]
  4. EFCORLIN (HYDROCORTISONE SODIUM SUCCINATE) (HYDROCORTISONE SODIUM SUCC [Concomitant]
  5. DEXAMETHASONE [Concomitant]
  6. GRANISETRON (GRANISETRON) (GRANISETRON) [Concomitant]
  7. RANITIDINE (RANITIDINE) (RANITIDINE) [Concomitant]
  8. REBEPRAZOLE (REBEPRAZOLE) ( REBPRAZOLE) [Concomitant]
  9. DOMPERIDONE (DOMPERIDONE) (DOMPERIIDONE) [Concomitant]

REACTIONS (3)
  - BACK PAIN [None]
  - BLOOD PRESSURE INCREASED [None]
  - DYSPNOEA [None]
